FAERS Safety Report 19284917 (Version 2)
Quarter: 2021Q2

REPORT INFORMATION
  Report Type: Report from Study
  Country: PL (occurrence: PL)
  Receive Date: 20210521
  Receipt Date: 20210602
  Transmission Date: 20210717
  Serious: Yes (Hospitalization)
  Sender: FDA-Public Use
  Company Number: PL-CELGENEUS-POL-20210503619

PATIENT
  Sex: Female

DRUGS (11)
  1. FEBROFEN [Concomitant]
     Active Substance: KETOPROFEN
     Indication: INTERVERTEBRAL DISC DEGENERATION
     Route: 048
     Dates: start: 20160801
  2. POLVERTIC [Concomitant]
     Indication: VERTIGO
     Dosage: 48 MILLIGRAM
     Route: 048
     Dates: start: 20160825
  3. LETROX [Concomitant]
     Active Substance: LEVOTHYROXINE SODIUM
     Indication: HYPOTHYROIDISM
     Dosage: .05 MILLIGRAM
     Route: 048
  4. YASMIN [Concomitant]
     Active Substance: DROSPIRENONE\ETHINYL ESTRADIOL
     Indication: CONTRACEPTION
     Dosage: 1 (TABLET DOSING UNIT)
     Route: 048
     Dates: start: 20170622
  5. OZANIMOD. [Suspect]
     Active Substance: OZANIMOD
     Dosage: 1 MILLIGRAM
     Route: 048
     Dates: end: 20210512
  6. CYCLO 3 FORT [Concomitant]
     Active Substance: ASCORBIC ACID\HESPERIDIN METHYLCHALCONE\RUSCUS ACULEATUS ROOT
     Indication: INFLAMMATION
     Dosage: 150+150+100 (MILLIGRAM)
     Route: 048
     Dates: start: 20190514
  7. OZANIMOD. [Suspect]
     Active Substance: OZANIMOD
     Indication: RELAPSING MULTIPLE SCLEROSIS
     Dosage: 1 MILLIGRAM
     Route: 048
     Dates: start: 20161122
  8. HEMOFER PROLONGATUM [Concomitant]
     Active Substance: FERROUS SULFATE ANHYDROUS
     Indication: ANAEMIA
     Dosage: 325 MILLIGRAM
     Route: 048
     Dates: start: 20170912
  9. HEPARIZEN [Concomitant]
     Indication: INFLAMMATION
     Dosage: 2 DOSAGE FORMS
     Route: 061
     Dates: start: 20190514
  10. POLPRIL [Concomitant]
     Active Substance: RAMIPRIL
     Indication: HYPERTENSION
     Dosage: 5 MILLIGRAM
     Route: 048
     Dates: start: 20200818
  11. ACARD [Concomitant]
     Indication: PROPHYLAXIS
     Dosage: 75 MILLIGRAM
     Route: 048
     Dates: start: 20200915

REACTIONS (2)
  - Dermatofibrosarcoma protuberans [Recovered/Resolved]
  - Vulval abscess [Recovered/Resolved with Sequelae]

NARRATIVE: CASE EVENT DATE: 20210218
